FAERS Safety Report 23135424 (Version 1)
Quarter: 2023Q4

REPORT INFORMATION
  Report Type: Spontaneous
  Country: US (occurrence: None)
  Receive Date: 20231101
  Receipt Date: 20231101
  Transmission Date: 20240110
  Serious: No
  Sender: FDA-Public Use
  Company Number: None

PATIENT
  Age: 72 Year
  Sex: Female
  Weight: 89.36 kg

DRUGS (1)
  1. ALLOPURINOL [Suspect]
     Active Substance: ALLOPURINOL
     Indication: Gout
     Dosage: OTHER QUANTITY : DOSAGE ONE TABLET ;?FREQUENCY : DAILY;?
     Route: 048
     Dates: start: 20230623

REACTIONS (3)
  - Submaxillary gland enlargement [None]
  - Rash pruritic [None]
  - Nonspecific reaction [None]

NARRATIVE: CASE EVENT DATE: 20230829
